FAERS Safety Report 7867801-9 (Version None)
Quarter: 2011Q4

REPORT INFORMATION
  Report Type: 
  Country: None (occurrence: None)
  Receive Date: 20111028
  Receipt Date: 20111024
  Transmission Date: 20120403
  Serious: Yes (Hospitalization)
  Sender: FDA-Public Use
  Company Number: GB-AMGEN-GBRCT2011038979

PATIENT
  Age: 67 Year
  Sex: Female

DRUGS (6)
  1. CYCLOPHOSPHAMIDE [Concomitant]
     Dosage: UNK
     Dates: start: 20110513, end: 20110701
  2. FLUOROURACIL [Concomitant]
     Dosage: UNK
     Dates: start: 20110513, end: 20110701
  3. EPIRUBICIN [Concomitant]
     Dosage: UNK
     Dates: start: 20110513, end: 20110701
  4. DOCETAXEL [Concomitant]
     Dosage: 160 MG, Q3WK
     Route: 042
     Dates: start: 20110722
  5. BLINDED DENOSUMAB [Suspect]
     Indication: BREAST CANCER
     Dosage: UNK UNK, Q3WK
     Route: 058
     Dates: start: 20110513
  6. BLINDED PLACEBO [Suspect]
     Indication: BREAST CANCER
     Dosage: UNK UNK, Q3WK
     Route: 058
     Dates: start: 20110513

REACTIONS (5)
  - DECREASED APPETITE [None]
  - DIARRHOEA [None]
  - PAIN [None]
  - ABDOMINAL PAIN [None]
  - VOMITING [None]
